FAERS Safety Report 7644150-5 (Version None)
Quarter: 2011Q3

REPORT INFORMATION
  Report Type: 
  Country: None (occurrence: None)
  Receive Date: 20110728
  Receipt Date: 20110728
  Transmission Date: 20111222
  Serious: No
  Sender: FDA-Public Use
  Company Number: None

PATIENT
  Age: 70 Year
  Sex: Female
  Weight: 68.4932 kg

DRUGS (1)
  1. ALENDRONATE SODIUM [Suspect]
     Indication: OSTEOPOROSIS
     Dosage: 70 MG ONCE WEEKLY P.O. X11 REFILLS
     Route: 048
     Dates: start: 20110723

REACTIONS (7)
  - ABDOMINAL DISTENSION [None]
  - BONE PAIN [None]
  - MYALGIA [None]
  - MOVEMENT DISORDER [None]
  - CHEST DISCOMFORT [None]
  - ARTHRALGIA [None]
  - BACK PAIN [None]
